FAERS Safety Report 10100372 (Version 2)
Quarter: 2014Q2

REPORT INFORMATION
  Report Type: Spontaneous
  Country: US (occurrence: US)
  Receive Date: 20140423
  Receipt Date: 20140612
  Transmission Date: 20141212
  Serious: Yes (Hospitalization, Other)
  Sender: FDA-Public Use
  Company Number: US-BAYER-2014-057863

PATIENT
  Age: 49 Year
  Sex: Female

DRUGS (2)
  1. MIRENA [Suspect]
     Dosage: 20 MCG/24HR, CONT
     Route: 015
     Dates: start: 2010
  2. LOVASTATIN [Concomitant]
     Dosage: DAILY DOSE 20 MG

REACTIONS (3)
  - Abdominal pain [Not Recovered/Not Resolved]
  - Genital haemorrhage [None]
  - Adverse event [None]
